FAERS Safety Report 17728527 (Version 2)
Quarter: 2020Q3

REPORT INFORMATION
  Report Type: Spontaneous
  Country: JP (occurrence: JP)
  Receive Date: 20200430
  Receipt Date: 20200723
  Transmission Date: 20201102
  Serious: Yes (Other)
  Sender: FDA-Public Use
  Company Number: JP-AMGEN-JPNSP2020046610

PATIENT
  Age: 57 Year
  Sex: Female

DRUGS (7)
  1. ROMIPLATE [Suspect]
     Active Substance: ROMIPLOSTIM
     Dosage: 4 UG
     Route: 058
     Dates: start: 20180101, end: 20180101
  2. ROMIPLATE [Suspect]
     Active Substance: ROMIPLOSTIM
     Indication: IMMUNE THROMBOCYTOPENIA
     Dosage: 1 UG
     Route: 058
     Dates: start: 20171206, end: 20171206
  3. ROMIPLATE [Suspect]
     Active Substance: ROMIPLOSTIM
     Dosage: 3 UG
     Route: 058
     Dates: start: 20171218, end: 20171218
  4. ROMIPLATE [Suspect]
     Active Substance: ROMIPLOSTIM
     Dosage: 4 UG, 1X/2 WEEKS
     Route: 058
     Dates: start: 20180122
  5. ROMIPLATE [Suspect]
     Active Substance: ROMIPLOSTIM
     Dosage: 5 UG, 1X/2 WEEKS
     Route: 058
     Dates: start: 20180205
  6. ROMIPLATE [Suspect]
     Active Substance: ROMIPLOSTIM
     Dosage: 2 UG
     Route: 058
     Dates: start: 20171211, end: 20171211
  7. ROMIPLATE [Suspect]
     Active Substance: ROMIPLOSTIM
     Dosage: 8 UG, 1X/2 WEEKS
     Route: 058
     Dates: start: 20190817, end: 20200201

REACTIONS (2)
  - Off label use [Unknown]
  - Brain stem infarction [Recovered/Resolved with Sequelae]

NARRATIVE: CASE EVENT DATE: 20200214
